FAERS Safety Report 12382776 (Version 1)
Quarter: 2016Q2

REPORT INFORMATION
  Report Type: Spontaneous
  Country: US (occurrence: US)
  Receive Date: 20160518
  Receipt Date: 20160518
  Transmission Date: 20160815
  Serious: No
  Sender: FDA-Public Use
  Company Number: ADR-2015-01344

PATIENT
  Age: 60 Year
  Sex: Male

DRUGS (9)
  1. FENTANYL. [Suspect]
     Active Substance: FENTANYL
     Dosage: 450.2
     Route: 037
     Dates: start: 201504
  2. PRIALT [Suspect]
     Active Substance: ZICONOTIDE ACETATE
     Route: 037
     Dates: start: 20140311, end: 201403
  3. DILAUDID [Suspect]
     Active Substance: HYDROMORPHONE HYDROCHLORIDE
     Dosage: 13.507
     Route: 037
     Dates: start: 201504
  4. MORPHINE [Suspect]
     Active Substance: MORPHINE
     Route: 048
  5. DILAUDID [Suspect]
     Active Substance: HYDROMORPHONE HYDROCHLORIDE
     Dosage: 12.995
     Route: 037
     Dates: start: 20150630
  6. BACLOFEN. [Suspect]
     Active Substance: BACLOFEN
     Dosage: 67.54
     Route: 037
  7. BACLOFEN. [Suspect]
     Active Substance: BACLOFEN
     Dosage: 6.998
     Route: 037
     Dates: start: 20150630
  8. FENTANYL. [Suspect]
     Active Substance: FENTANYL
     Dosage: 649.8
     Route: 037
     Dates: start: 20150630
  9. CLONIDINE. [Suspect]
     Active Substance: CLONIDINE
     Dosage: 11.256
     Route: 037
     Dates: start: 201504

REACTIONS (5)
  - No therapeutic response [Unknown]
  - Malaise [Unknown]
  - Decreased appetite [Unknown]
  - Nausea [Unknown]
  - Pain [Unknown]
